FAERS Safety Report 16607742 (Version 1)
Quarter: 2019Q3

REPORT INFORMATION
  Report Type: Spontaneous
  Country: DE (occurrence: DE)
  Receive Date: 20190722
  Receipt Date: 20190722
  Transmission Date: 20191004
  Serious: Yes (Life-Threatening, Hospitalization, Other)
  Sender: FDA-Public Use
  Company Number: DE-TEVA-2019-DE-1079960

PATIENT
  Age: 80 Year
  Sex: Female
  Weight: 62 kg

DRUGS (15)
  1. JONOSTERIL PLASTIK 500ML [Concomitant]
     Dosage: 6|4|0|0|0 MMOL/L, 0-0-0-1, SOLUTION FOR INJECTION/INFUSION
     Route: 042
  2. PREDNISOLONE. [Suspect]
     Active Substance: PREDNISOLONE
     Dosage: 20 MG, 1-0-0-0, TABLETS
     Route: 048
  3. PANTOPRAZOL [Concomitant]
     Active Substance: PANTOPRAZOLE SODIUM
     Dosage: 40 MG, 1-0-1-0, TABLETS
     Route: 048
  4. MACROGOL [Concomitant]
     Active Substance: POLYETHYLENE GLYCOLS
     Dosage: 13.125|0.35|0.18|0.05 G, 1-0-0-0, POWDER
     Route: 048
  5. SPIRIVA RESPIMAT 2,5MIKROGRAMM [Concomitant]
     Dosage: 2.5 MICROGRAMS, 1-0-0-0, DOSING AEROSOL
     Route: 055
  6. QUILONUM RETARD [Concomitant]
     Active Substance: LITHIUM CARBONATE
     Dosage: 450 MG, 0.5-0-0-0, RETARD-TABLETS
     Route: 048
  7. XARELTO [Suspect]
     Active Substance: RIVAROXABAN
     Dosage: 20 MG, 1-0-0-0, TABLETS
     Route: 048
  8. REMERGIL SOLTAB 30MG [Concomitant]
     Dosage: 30 MG, 0-0-0-1, TABLETS
     Route: 048
  9. VIANI DISKUS 50MIKROGRAMM/250MIKROGRAMM [Concomitant]
     Dosage: 50|250 MICROGRAMS, 1-0-1-0, DOSING AEROSOL
     Route: 055
  10. TAVOR 0,5MG [Concomitant]
     Dosage: 0.5 MG, 1-0-0-0, TABLETS
     Route: 048
  11. SEROXAT 20 MG COMPRIMIDOS RECUBIERTOS CON PELICULA, 56 COMPRIMIDOS [Suspect]
     Active Substance: PAROXETINE HYDROCHLORIDE
     Dosage: 20 MG, 1-0-0-0, TABLETS
     Route: 048
  12. TAVOR 0,5MG [Concomitant]
     Dosage: 0.5 MG, DEMAND, TABLETS
     Route: 048
  13. LAXOBERAL ABFUHR-TROPFEN 7,5MG/ML [Concomitant]
     Dosage: 7.5 MG/ML, DEMAND, DROPS
     Route: 048
  14. BELOC-ZOK HERZ 23,75MG [Concomitant]
     Dosage: 23.75 MG, 1-0-0-0, TABLETS
     Route: 048
  15. RAMIPRIL. [Concomitant]
     Active Substance: RAMIPRIL
     Dosage: 2.5 MG, 1-0-1-0, TABLETS
     Route: 048

REACTIONS (2)
  - Haematemesis [Unknown]
  - Hypertension [Unknown]
